FAERS Safety Report 8309113 (Version 3)
Quarter: 2012Q4

REPORT INFORMATION
  Report Type: 
  Country: FR (occurrence: FR)
  Receive Date: 20111222
  Receipt Date: 20121009
  Transmission Date: 20130627
  Serious: Yes (Hospitalization)
  Sender: FDA-Public Use
  Company Number: FR-RB-035614-11

PATIENT
  Sex: Male

DRUGS (3)
  1. SUBUTEX [Suspect]
     Indication: DRUG DEPENDENCE
     Route: 064
     Dates: start: 201101, end: 201108
  2. SUBUTEX [Suspect]
     Route: 064
     Dates: start: 201108, end: 20110824
  3. SUBUTEX [Suspect]
     Route: 063
     Dates: start: 201108, end: 201209

REACTIONS (4)
  - Apnoea [Unknown]
  - Bronchiolitis [Unknown]
  - Foetal exposure during pregnancy [Recovered/Resolved]
  - Exposure during breast feeding [Recovered/Resolved]
